FAERS Safety Report 7874938-7 (Version None)
Quarter: 2011Q4

REPORT INFORMATION
  Report Type: 
  Country: None (occurrence: None)
  Receive Date: 20111014
  Receipt Date: 20110124
  Transmission Date: 20120403
  Serious: Yes (Other)
  Sender: FDA-Public Use
  Company Number: 1000018377

PATIENT
  Age: 57 Year
  Sex: Female

DRUGS (15)
  1. LIPITOR [Suspect]
     Indication: BLOOD CHOLESTEROL INCREASED
     Dates: start: 20050101
  2. LEXAPRO [Suspect]
     Indication: OBSESSIVE-COMPULSIVE DISORDER
     Dosage: 10 MG (10 MG,1 IN 1 D),ORAL ; 20 MG (20 MG,1 IN 1 D),ORAL
     Route: 048
     Dates: start: 20030219, end: 20030225
  3. LEXAPRO [Suspect]
     Indication: DEPRESSION
     Dosage: 10 MG (10 MG,1 IN 1 D),ORAL ; 20 MG (20 MG,1 IN 1 D),ORAL
     Route: 048
     Dates: start: 20030219, end: 20030225
  4. LEXAPRO [Suspect]
     Indication: OBSESSIVE-COMPULSIVE DISORDER
     Dosage: 10 MG (10 MG,1 IN 1 D),ORAL ; 20 MG (20 MG,1 IN 1 D),ORAL
     Route: 048
     Dates: start: 20030226, end: 20060101
  5. LEXAPRO [Suspect]
     Indication: DEPRESSION
     Dosage: 10 MG (10 MG,1 IN 1 D),ORAL ; 20 MG (20 MG,1 IN 1 D),ORAL
     Route: 048
     Dates: start: 20030226, end: 20060101
  6. DEXEDRINE (DEXAMFETAMINE SULFATE) (DEXAMFETAMINE SULFATE) [Concomitant]
  7. NADOLOL (NADOLOL) (NADOLOL) [Concomitant]
  8. ADDERALL (AMPHETAMINE, DEXTROAMPHETAMINE) (AMPHETAMINE, DEXTROAMPHETAM [Concomitant]
  9. PRAVASTATIN [Concomitant]
  10. LEXAPRO [Suspect]
     Indication: DEPRESSION
     Dosage: 40 MG (40 MG,1 IN 1 D),ORAL ; 20 MG (20 MG,1 IN 1 D),ORAL ;  30 MG, (30 MG,1 IN 1 D),ORAL
     Route: 048
     Dates: start: 20110124
  11. LEXAPRO [Suspect]
     Indication: OBSESSIVE-COMPULSIVE DISORDER
     Dosage: 40 MG (40 MG,1 IN 1 D),ORAL ; 20 MG (20 MG,1 IN 1 D),ORAL ;  30 MG, (30 MG,1 IN 1 D),ORAL
     Route: 048
     Dates: start: 20110124
  12. LEXAPRO [Suspect]
     Indication: DEPRESSION
     Dosage: 40 MG (40 MG,1 IN 1 D),ORAL ; 20 MG (20 MG,1 IN 1 D),ORAL ;  30 MG, (30 MG,1 IN 1 D),ORAL
     Route: 048
     Dates: start: 20060101, end: 20060101
  13. LEXAPRO [Suspect]
     Indication: OBSESSIVE-COMPULSIVE DISORDER
     Dosage: 40 MG (40 MG,1 IN 1 D),ORAL ; 20 MG (20 MG,1 IN 1 D),ORAL ;  30 MG, (30 MG,1 IN 1 D),ORAL
     Route: 048
     Dates: start: 20060101, end: 20060101
  14. LEXAPRO [Suspect]
     Indication: DEPRESSION
     Dosage: 40 MG (40 MG,1 IN 1 D),ORAL ; 20 MG (20 MG,1 IN 1 D),ORAL ;  30 MG, (30 MG,1 IN 1 D),ORAL
     Route: 048
     Dates: start: 20060101, end: 20110123
  15. LEXAPRO [Suspect]
     Indication: OBSESSIVE-COMPULSIVE DISORDER
     Dosage: 40 MG (40 MG,1 IN 1 D),ORAL ; 20 MG (20 MG,1 IN 1 D),ORAL ;  30 MG, (30 MG,1 IN 1 D),ORAL
     Route: 048
     Dates: start: 20060101, end: 20110123

REACTIONS (4)
  - OVERDOSE [None]
  - NEPHROLITHIASIS [None]
  - MYALGIA [None]
  - HYPERSOMNIA [None]
